FAERS Safety Report 7523639-3 (Version None)
Quarter: 2011Q2

REPORT INFORMATION
  Report Type: 
  Country: None (occurrence: None)
  Receive Date: 20110603
  Receipt Date: 20110525
  Transmission Date: 20111010
  Serious: Yes (Life-Threatening, Hospitalization, Disabling, Other)
  Sender: FDA-Public Use
  Company Number: A0930092A

PATIENT
  Age: 67 Year
  Sex: Male

DRUGS (1)
  1. ARZERRA [Suspect]
     Route: 042
     Dates: start: 20110421, end: 20110512

REACTIONS (1)
  - FEBRILE NEUTROPENIA [None]
